FAERS Safety Report 10039242 (Version 2)
Quarter: 2014Q3

REPORT INFORMATION
  Report Type: Report from Study
  Country: MX (occurrence: MX)
  Receive Date: 20140326
  Receipt Date: 20140714
  Transmission Date: 20150326
  Serious: Yes (Hospitalization, Other)
  Sender: FDA-Public Use
  Company Number: PHHY2014MX035644

PATIENT
  Age: 73 Year
  Sex: Male

DRUGS (4)
  1. EXELON PATCH [Suspect]
     Active Substance: RIVASTIGMINE
     Indication: CEREBROVASCULAR ACCIDENT
     Dosage: 4.6 MG, DAILY
     Route: 062
     Dates: start: 20130926, end: 201310
  2. EXELON PATCH [Suspect]
     Active Substance: RIVASTIGMINE
     Indication: OFF LABEL USE
     Dosage: 9.5 MG, DAILY
     Route: 062
     Dates: start: 201310
  3. EXELON PATCH [Suspect]
     Active Substance: RIVASTIGMINE
     Dosage: 13.3 MG, DAILY
     Route: 062
  4. PHENYTOIN. [Concomitant]
     Active Substance: PHENYTOIN
     Indication: CEREBROVASCULAR ACCIDENT
     Dosage: UNK UKN, QD
     Dates: start: 20140122

REACTIONS (4)
  - Thrombocytopenia [Recovered/Resolved]
  - Depression [Not Recovered/Not Resolved]
  - Drug ineffective [Recovered/Resolved]
  - Cardiac disorder [Not Recovered/Not Resolved]

NARRATIVE: CASE EVENT DATE: 20130926
